FAERS Safety Report 19026540 (Version 1)
Quarter: 2021Q1

REPORT INFORMATION
  Report Type: Spontaneous
  Country: CN (occurrence: CN)
  Receive Date: 20210318
  Receipt Date: 20210318
  Transmission Date: 20210420
  Serious: Yes (Other)
  Sender: FDA-Public Use
  Company Number: CN-PFIZER INC-2021247114

PATIENT
  Age: 49 Year
  Sex: Female

DRUGS (10)
  1. ENDOXAN [CYCLOPHOSPHAMIDE] [Suspect]
     Active Substance: CYCLOPHOSPHAMIDE
     Indication: T-CELL LYMPHOMA
     Dosage: 1.15 G, 1X/DAY
     Route: 041
     Dates: start: 20210126, end: 20210126
  2. SODIUM CHLORIDE. [Concomitant]
     Active Substance: SODIUM CHLORIDE
     Dosage: 40.000 ML, 1X/DAY
     Route: 042
     Dates: start: 20210126, end: 20210126
  3. PHARMORUBICIN [Suspect]
     Active Substance: EPIRUBICIN
     Indication: T-CELL LYMPHOMA
     Dosage: 107MG, 1X/DAY
     Route: 041
     Dates: start: 20210126, end: 20210126
  4. VINDESINE SULFATE [Suspect]
     Active Substance: VINDESINE SULFATE
     Indication: T-CELL LYMPHOMA
     Dosage: 4MG, 1X/DAY
     Route: 042
     Dates: start: 20210126, end: 20210126
  5. ETOPOSIDE. [Suspect]
     Active Substance: ETOPOSIDE
     Indication: T-CELL LYMPHOMA
     Dosage: 5ML, 1X/DAY
     Route: 041
     Dates: start: 20210126, end: 20210128
  6. MESNA. [Suspect]
     Active Substance: MESNA
     Indication: T-CELL LYMPHOMA
     Dosage: 0.4 G, 3X/DAY
     Route: 041
     Dates: start: 20210126, end: 20210126
  7. SODIUM CHLORIDE. [Concomitant]
     Active Substance: SODIUM CHLORIDE
     Indication: VEHICLE SOLUTION USE
     Dosage: 100.000 ML, 1X/DAY
     Route: 041
     Dates: start: 20210126, end: 20210126
  8. SODIUM CHLORIDE. [Concomitant]
     Active Substance: SODIUM CHLORIDE
     Dosage: 100.000 ML, 3X/DAY
     Route: 041
     Dates: start: 20210126, end: 20210126
  9. SODIUM CHLORIDE. [Concomitant]
     Active Substance: SODIUM CHLORIDE
     Indication: VEHICLE SOLUTION USE
     Dosage: 250.000 ML, 1X/DAY
     Route: 041
     Dates: start: 20210126, end: 20210126
  10. SODIUM CHLORIDE. [Concomitant]
     Active Substance: SODIUM CHLORIDE
     Indication: VEHICLE SOLUTION USE
     Dosage: 500.000 ML, 1X/DAY
     Route: 041
     Dates: start: 20210126, end: 20210128

REACTIONS (6)
  - White blood cell count decreased [Recovering/Resolving]
  - Blood count abnormal [Recovering/Resolving]
  - Haemoglobin decreased [Recovering/Resolving]
  - Platelet count decreased [Recovering/Resolving]
  - Red blood cell count decreased [Recovering/Resolving]
  - Neutrophil count decreased [Recovering/Resolving]

NARRATIVE: CASE EVENT DATE: 20210127
